FAERS Safety Report 10229066 (Version 1)
Quarter: 2014Q2

REPORT INFORMATION
  Report Type: Report from Study
  Country: US (occurrence: US)
  Receive Date: 20140610
  Receipt Date: 20140610
  Transmission Date: 20141212
  Serious: Yes (Death, Other)
  Sender: FDA-Public Use
  Company Number: US-ABBVIE-14P-163-1245788-00

PATIENT
  Age: 60 Year
  Sex: Female
  Weight: 90.8 kg

DRUGS (1)
  1. HUMIRA [Suspect]
     Indication: PSORIATIC ARTHROPATHY

REACTIONS (10)
  - Cardiac arrest [Fatal]
  - Pulmonary hypertension [Fatal]
  - Dyspnoea [Unknown]
  - Thrombosis [Unknown]
  - Fall [Unknown]
  - Upper limb fracture [Unknown]
  - Skeletal injury [Unknown]
  - Injury [Unknown]
  - Painful respiration [Unknown]
  - Pneumonia [Unknown]
